FAERS Safety Report 5143003-4 (Version None)
Quarter: 2006Q4

REPORT INFORMATION
  Report Type: 
  Country: None (occurrence: None)
  Receive Date: 20061103
  Receipt Date: 20060921
  Transmission Date: 20070319
  Serious: Yes (Death, Hospitalization)
  Sender: FDA-Public Use
  Company Number: US-ELI_LILLY_AND_COMPANY-US200609005649

PATIENT
  Age: 44 Year
  Sex: Male
  Weight: 145.12 kg

DRUGS (2)
  1. ZYPREXA [Suspect]
     Indication: DEPRESSION
     Dosage: 2.5 MG, UNK
     Dates: start: 20000101, end: 20040101
  2. ZYPREXA [Suspect]
     Dosage: 5 MG, UNK

REACTIONS (2)
  - DEATH [None]
  - PANCREATITIS [None]
